FAERS Safety Report 6383863-2 (Version None)
Quarter: 2009Q3

REPORT INFORMATION
  Report Type: 
  Country: None (occurrence: None)
  Receive Date: 20090929
  Receipt Date: 20090929
  Transmission Date: 20100115
  Serious: Yes (Disabling, Other)
  Sender: FDA-Public Use
  Company Number: None

PATIENT
  Age: 36 Year
  Sex: Female
  Weight: 83.4619 kg

DRUGS (1)
  1. MESTINON [Suspect]
     Indication: MYASTHENIA GRAVIS
     Dosage: 1 1/2 TO 2 TABLETS EVERY FOUR HOURS PO
     Route: 048
     Dates: start: 20090810, end: 20090910

REACTIONS (3)
  - DRUG INEFFECTIVE [None]
  - MYASTHENIA GRAVIS CRISIS [None]
  - POOR QUALITY DRUG ADMINISTERED [None]
